FAERS Safety Report 17031081 (Version 1)
Quarter: 2019Q4

REPORT INFORMATION
  Report Type: Spontaneous
  Country: US (occurrence: US)
  Receive Date: 20191011
  Receipt Date: 20191011
  Transmission Date: 20200122
  Serious: Yes (Other)
  Sender: FDA-Public Use
  Company Number: None

PATIENT
  Age: 85 Year
  Sex: Female
  Weight: 64.41 kg

DRUGS (9)
  1. FUROSAMIDE [Concomitant]
     Active Substance: FUROSEMIDE
  2. LATONOPROST [Concomitant]
  3. OXYBUTYNIN 5MG [Suspect]
     Active Substance: OXYBUTYNIN
     Indication: HYPERTONIC BLADDER
     Dosage: ?          QUANTITY:2 DF DOSAGE FORM;?
     Route: 048
     Dates: start: 20170105, end: 20190505
  4. NORTRIPTLINE [Concomitant]
  5. PRAVASTEN [Concomitant]
  6. LOSARTAN. [Concomitant]
     Active Substance: LOSARTAN
  7. RECORDER FOR AFIB [Concomitant]
  8. PROTONIX [Concomitant]
     Active Substance: PANTOPRAZOLE SODIUM
  9. ELQUIS [Concomitant]

REACTIONS (2)
  - Dementia [None]
  - Amnesia [None]
